FAERS Safety Report 5830237-6 (Version None)
Quarter: 2008Q3

REPORT INFORMATION
  Report Type: 
  Country: None (occurrence: None)
  Receive Date: 20080801
  Receipt Date: 20080725
  Transmission Date: 20090109
  Serious: Yes (Death)
  Sender: FDA-Public Use
  Company Number: B0529783A

PATIENT

DRUGS (4)
  1. RETROVIR [Suspect]
     Indication: HIV INFECTION
  2. LOPINAVIR AND RITONAVIR [Suspect]
     Indication: HIV INFECTION
  3. ZIDOVUDINE [Suspect]
  4. MEGLUMINE SODIUM AMIDOTRIZOATE [Concomitant]

REACTIONS (14)
  - ABDOMINAL DISTENSION [None]
  - BONE DENSITY DECREASED [None]
  - DRUG EXPOSURE DURING PREGNANCY [None]
  - FOETAL HEART RATE DECELERATION [None]
  - HUMERUS FRACTURE [None]
  - INTESTINAL DILATATION [None]
  - LUNG DISORDER [None]
  - MECONIUM PLUG SYNDROME [None]
  - OSTEOMALACIA [None]
  - PULMONARY HYPERTENSION [None]
  - RESPIRATORY DISORDER [None]
  - RESPIRATORY DISTRESS [None]
  - RIB DEFORMITY [None]
  - SMALL FOR DATES BABY [None]
